FAERS Safety Report 10413233 (Version 1)
Quarter: 2014Q3

REPORT INFORMATION
  Report Type: Report from Study
  Country: US (occurrence: None)
  Receive Date: 20140825
  Receipt Date: 20140825
  Transmission Date: 20150326
  Serious: Yes (Other)
  Sender: FDA-Public Use
  Company Number: AUR-APL-2014-08871

PATIENT
  Age: 23 Year
  Sex: Female
  Weight: 79.8 kg

DRUGS (19)
  1. URSODIOL (URSODEOXYCHOLIC ACID) [Concomitant]
  2. HYDROCORTISONE SODIUM SUCCINATE (HYDROCORTISONE SODIUM SUCCINATE) [Concomitant]
  3. ZOFRAN (ONDANSETRON HYDROCHLORIDE) [Concomitant]
  4. BENADRYL [Concomitant]
     Active Substance: DIPHENHYDRAMINE HYDROCHLORIDE
  5. OS-CAL 500 + D (CALCIUM CARBONATGE, ERGOCALCIFEROL) [Concomitant]
  6. MOTRIN [Concomitant]
     Active Substance: IBUPROFEN
  7. TYLENOL [Concomitant]
     Active Substance: ACETAMINOPHEN
  8. G-CSF (GRANULOCYTE COLONY STIMULATING FACTOR) [Concomitant]
     Active Substance: FILGRASTIM
  9. GABAPENTIN. [Suspect]
     Active Substance: GABAPENTIN
     Indication: PAIN
     Route: 048
     Dates: start: 20140511
  10. INOTUZUMAB OZOGAMICIN [Suspect]
     Active Substance: INOTUZUMAB OZOGAMICIN
     Indication: ACUTE LYMPHOCYTIC LEUKAEMIA RECURRENT
     Dosage: DAY 1
     Route: 041
     Dates: start: 20140625, end: 20140709
  11. ISRADIPINE (ISRADIPINE) [Concomitant]
  12. AMBISOME [Suspect]
     Active Substance: AMPHOTERICIN B
     Indication: FUNGAL INFECTION
     Route: 042
     Dates: start: 20140625, end: 20140709
  13. ZANTAC [Concomitant]
     Active Substance: RANITIDINE HYDROCHLORIDE
  14. OXYCONTIN [Concomitant]
     Active Substance: OXYCODONE HYDROCHLORIDE
  15. LEVOFLOXACIN [Suspect]
     Active Substance: LEVOFLOXACIN
     Indication: SINUSITIS
     Route: 042
     Dates: start: 20140529
  16. FENTANYL CITRATE (FENTANYL CITRATE) [Concomitant]
  17. FENTANYL (FENTANYL) [Concomitant]
     Active Substance: FENTANYL
  18. ATIVAN [Concomitant]
     Active Substance: LORAZEPAM
  19. SARGRAMOSTIM (SARGRAMOSTIM) [Concomitant]

REACTIONS (14)
  - Fluid imbalance [None]
  - Coagulation factor VII level decreased [None]
  - Blood glucose increased [None]
  - Blood potassium decreased [None]
  - Prothrombin level decreased [None]
  - Carbon dioxide decreased [None]
  - Blood creatinine decreased [None]
  - Blood magnesium decreased [None]
  - Bilirubin conjugated increased [None]
  - Coagulation factor IX level decreased [None]
  - Respiratory distress [None]
  - Hypoxia [None]
  - Coagulation factor X level decreased [None]
  - Blood chloride increased [None]

NARRATIVE: CASE EVENT DATE: 20140803
